FAERS Safety Report 11313402 (Version 1)
Quarter: 2015Q3

REPORT INFORMATION
  Report Type: Spontaneous
  Country: US (occurrence: None)
  Receive Date: 20150724
  Receipt Date: 20150724
  Transmission Date: 20151125
  Serious: No
  Sender: FDA-Public Use
  Company Number: None

PATIENT
  Age: 75 Year
  Sex: Female

DRUGS (1)
  1. HUMIRA [Suspect]
     Active Substance: ADALIMUMAB
     Indication: RHEUMATOID ARTHRITIS
     Dosage: 40MG, Q2W, SQ
     Route: 058
     Dates: start: 20150701

REACTIONS (5)
  - Migraine [None]
  - Headache [None]
  - Eye pain [None]
  - Heart rate increased [None]
  - Arthritis [None]
